FAERS Safety Report 7570338-8 (Version None)
Quarter: 2011Q2

REPORT INFORMATION
  Report Type: 
  Country: None (occurrence: None)
  Receive Date: 20110624
  Receipt Date: 20110613
  Transmission Date: 20111010
  Serious: Yes (Death)
  Sender: FDA-Public Use
  Company Number: SE-SANOFI-AVENTIS-2011SA037228

PATIENT
  Age: 77 Year
  Sex: Male

DRUGS (8)
  1. WARFARIN SODIUM [Concomitant]
     Route: 048
  2. DESLORATADINE [Concomitant]
     Dosage: 1 X 1 WHEN NEEDED
  3. MULTAQ [Suspect]
     Indication: ATRIAL FIBRILLATION
     Route: 048
     Dates: start: 20110307
  4. ACETYLCYSTEINE [Concomitant]
     Dosage: 1 X 3 WHEN NEEDED
  5. PULMICORT [Concomitant]
     Dosage: 1+0+1, AS GIVEN
  6. IMPUGAN [Concomitant]
     Route: 048
  7. CETIRIZINE HCL [Concomitant]
  8. METOPROLOL SUCCINATE [Concomitant]
     Route: 048

REACTIONS (3)
  - VENTRICULAR TACHYCARDIA [None]
  - CARDIAC ARREST [None]
  - CONDITION AGGRAVATED [None]
